FAERS Safety Report 11265276 (Version 1)
Quarter: 2015Q3

REPORT INFORMATION
  Report Type: Spontaneous
  Country: US (occurrence: None)
  Receive Date: 20150710
  Receipt Date: 20150710
  Transmission Date: 20151125
  Serious: Yes (Disabling)
  Sender: FDA-Public Use
  Company Number: None

PATIENT
  Age: 19 Year
  Sex: Female
  Weight: 63.5 kg

DRUGS (1)
  1. TOPAMAX [Suspect]
     Active Substance: TOPIRAMATE
     Indication: EPILEPSY
     Route: 048

REACTIONS (8)
  - Cognitive disorder [None]
  - Weight decreased [None]
  - Insomnia [None]
  - Speech disorder [None]
  - Memory impairment [None]
  - Decreased appetite [None]
  - Dysarthria [None]
  - Learning disorder [None]
